FAERS Safety Report 7477651-3 (Version None)
Quarter: 2011Q2

REPORT INFORMATION
  Report Type: 
  Country: None (occurrence: None)
  Receive Date: 20110513
  Receipt Date: 20110422
  Transmission Date: 20111010
  Serious: Yes (Hospitalization, Other)
  Sender: FDA-Public Use
  Company Number: US-BAYER-201036188NA

PATIENT
  Age: 21 Year
  Sex: Female
  Weight: 75 kg

DRUGS (12)
  1. YAZ [Suspect]
     Indication: MENSTRUATION IRREGULAR
     Dosage: UNK
     Dates: start: 20020101, end: 20090101
  2. YAZ [Suspect]
     Indication: ORAL CONTRACEPTION
  3. PENICILLIN V POTASSIUM [Concomitant]
     Dosage: 500 MG, BID
     Route: 048
     Dates: start: 20071117
  4. YASMIN [Suspect]
     Indication: ORAL CONTRACEPTION
     Dosage: UNK
     Route: 048
     Dates: start: 20020101, end: 20090101
  5. OXYCODONE HCL [Concomitant]
     Dosage: UNK
     Dates: start: 20071118
  6. IBUPROFEN [Concomitant]
     Dosage: UNK
     Dates: start: 20100101
  7. PERCOCET [Concomitant]
     Dosage: UNK
     Route: 048
     Dates: start: 20071117
  8. DROSPIRENONE AND ETHINYL ESTRADIOL [Suspect]
     Indication: ORAL CONTRACEPTION
  9. IBUPROFEN [Concomitant]
     Dosage: UNK
     Dates: start: 20020101
  10. NEXIUM [Concomitant]
  11. YASMIN [Suspect]
     Indication: MENSTRUATION IRREGULAR
  12. DROSPIRENONE AND ETHINYL ESTRADIOL [Suspect]
     Indication: MENSTRUATION IRREGULAR
     Dosage: UNK
     Dates: start: 20020101, end: 20090101

REACTIONS (4)
  - CHOLELITHIASIS [None]
  - APPENDICITIS [None]
  - GALLBLADDER DISORDER [None]
  - APPENDICECTOMY [None]
